FAERS Safety Report 16204449 (Version 1)
Quarter: 2019Q2

REPORT INFORMATION
  Report Type: Report from Study
  Country: US (occurrence: US)
  Receive Date: 20190416
  Receipt Date: 20190416
  Transmission Date: 20190711
  Serious: Yes (Life-Threatening, Other)
  Sender: FDA-Public Use
  Company Number: US-AIR PRODUCTS AND CHEMICALS, INC. -2065920

PATIENT
  Age: 75 Year
  Sex: Female

DRUGS (1)
  1. OXYGEN. [Suspect]
     Active Substance: OXYGEN

REACTIONS (3)
  - Acute respiratory distress syndrome [None]
  - Pneumomediastinum [None]
  - Barotrauma [None]
